FAERS Safety Report 11779165 (Version 4)
Quarter: 2017Q2

REPORT INFORMATION
  Report Type: Report from Study
  Country: NL (occurrence: NL)
  Receive Date: 20151125
  Receipt Date: 20170509
  Transmission Date: 20170829
  Serious: Yes (Hospitalization)
  Sender: FDA-Public Use
  Company Number: PHHO2015NL019521

PATIENT
  Age: 84 Year
  Sex: Male
  Weight: 70 kg

DRUGS (10)
  1. BLINDED ACZ885 [Suspect]
     Active Substance: CANAKINUMAB
     Indication: CARDIOVASCULAR EVENT PROPHYLAXIS
     Dosage: DOUBLE BLINDED
     Route: 058
     Dates: start: 20140207
  2. ACETYLSALICYLZUUR [Concomitant]
     Active Substance: ASPIRIN
     Indication: MYOCARDIAL INFARCTION
     Dosage: 80 MG, QD
     Route: 065
     Dates: start: 20130102
  3. PERINDOPRIL [Concomitant]
     Active Substance: PERINDOPRIL
     Indication: MYOCARDIAL INFARCTION
     Dosage: 4 MG, QD
     Route: 065
     Dates: start: 20130102
  4. BLINDED ACZ885 [Suspect]
     Active Substance: CANAKINUMAB
     Indication: CARDIOVASCULAR EVENT PROPHYLAXIS
     Dosage: DOUBLE BLINDED
     Route: 058
     Dates: start: 20140207
  5. BLINDED PLACEBO [Suspect]
     Active Substance: INVESTIGATIONAL PRODUCT
     Indication: CARDIOVASCULAR EVENT PROPHYLAXIS
     Dosage: DOUBLE BLINDED
     Route: 058
     Dates: start: 20140207
  6. FERRO [Concomitant]
     Indication: ANAEMIA
     Dosage: 105 MG, QD
     Route: 065
     Dates: start: 20151020
  7. AMOXICILLIN. [Suspect]
     Active Substance: AMOXICILLIN
     Indication: PRODUCT USED FOR UNKNOWN INDICATION
     Dosage: UNK
     Route: 065
  8. BLINDED NO TREATMENT RECEIVED [Suspect]
     Active Substance: INVESTIGATIONAL PRODUCT
     Indication: CARDIOVASCULAR EVENT PROPHYLAXIS
     Dosage: DOUBLE BLINDED
     Route: 058
     Dates: start: 20140207
  9. ATORVASTATINE [Concomitant]
     Active Substance: ATORVASTATIN
     Indication: MYOCARDIAL INFARCTION
     Dosage: 20 MG, QD
     Route: 065
     Dates: start: 20130102
  10. SOTALOL. [Concomitant]
     Active Substance: SOTALOL
     Indication: MYOCARDIAL INFARCTION
     Dosage: 20 MG, QD
     Route: 065
     Dates: start: 20130102

REACTIONS (2)
  - Cystitis [Not Recovered/Not Resolved]
  - Haematemesis [Not Recovered/Not Resolved]

NARRATIVE: CASE EVENT DATE: 20151020
